FAERS Safety Report 10153090 (Version 1)
Quarter: 2014Q2

REPORT INFORMATION
  Report Type: Spontaneous
  Country: BR (occurrence: BR)
  Receive Date: 20140505
  Receipt Date: 20140505
  Transmission Date: 20141212
  Serious: Yes (Hospitalization)
  Sender: FDA-Public Use
  Company Number: BR-BRISTOL-MYERS SQUIBB COMPANY-20672317

PATIENT
  Age: 77 Year
  Sex: Female
  Weight: 56 kg

DRUGS (4)
  1. HYDREA CAPS [Suspect]
     Indication: POLYCYTHAEMIA VERA
     Dosage: 1DF = 1 CAPSULE?SINCE 2011(2CAPS/DAY)
     Dates: start: 2011
  2. AAS [Concomitant]
     Indication: CARDIOVASCULAR DISORDER
  3. VASOGARD [Concomitant]
     Indication: VARICOSE VEIN
  4. OMEPRAZOLE [Concomitant]
     Indication: GASTROINTESTINAL DISORDER

REACTIONS (3)
  - White blood cell count increased [Unknown]
  - Platelet count increased [Unknown]
  - Off label use [Unknown]
